FAERS Safety Report 20689270 (Version 4)
Quarter: 2022Q2

REPORT INFORMATION
  Report Type: Spontaneous
  Country: JP (occurrence: JP)
  Receive Date: 20220408
  Receipt Date: 20220530
  Transmission Date: 20220721
  Serious: Yes (Death, Other)
  Sender: FDA-Public Use
  Company Number: JP-GSKNCCC-Case-01462319_AE-56683

PATIENT

DRUGS (9)
  1. SOTROVIMAB [Suspect]
     Active Substance: SOTROVIMAB
     Indication: COVID-19
     Dosage: 500 MG PER DAY, DIV BAG AT 100 ML 30 MIN
     Route: 041
     Dates: start: 20220325, end: 20220325
  2. CEFTRIAXONE SODIUM [Suspect]
     Active Substance: CEFTRIAXONE SODIUM
     Indication: Urinary tract infection
     Dosage: 1 G PER DAY
     Dates: start: 20220329, end: 20220402
  3. PHENOBARBITAL [Concomitant]
     Active Substance: PHENOBARBITAL
     Indication: Seizure prophylaxis
     Dosage: 30 MG, 3 TABS TID
     Route: 048
     Dates: end: 20220330
  4. GLIMEPIRIDE [Concomitant]
     Active Substance: GLIMEPIRIDE
     Indication: Diabetes mellitus
     Dosage: 1 MG PER DAY
     Route: 048
     Dates: end: 20220328
  5. LANSOPRAZOLE-OD TABLETS [Concomitant]
     Indication: Gastric ulcer
     Dosage: 15 MG PER DAY
     Route: 048
     Dates: end: 20220328
  6. URSODEOXYCHOLIC ACID TABLETS [Concomitant]
     Indication: Bile duct stone
     Dosage: 600 MG PER DAY
     Route: 048
     Dates: end: 20220328
  7. BIO-THREE COMBINATION TABLETS [Concomitant]
     Dosage: 6 DF PER DAY
     Route: 048
     Dates: end: 20220328
  8. SENNOSIDES [Concomitant]
     Active Substance: SENNOSIDES
     Indication: Constipation
     Dosage: 1 DF PER DAY
     Route: 048
     Dates: end: 20220328
  9. COMIRNATY [Concomitant]
     Active Substance: TOZINAMERAN
     Indication: COVID-19 prophylaxis
     Dosage: UNK
     Dates: start: 20220208

REACTIONS (10)
  - Acute respiratory failure [Fatal]
  - Condition aggravated [Fatal]
  - Loss of consciousness [Fatal]
  - Muscle spasms [Recovered/Resolved]
  - Facial spasm [Recovered/Resolved]
  - Binocular eye movement disorder [Recovered/Resolved]
  - Dysphagia [Unknown]
  - Oxygen saturation decreased [Unknown]
  - Decreased appetite [Unknown]
  - Drug ineffective [Unknown]

NARRATIVE: CASE EVENT DATE: 20220328
